FAERS Safety Report 19665662 (Version 1)
Quarter: 2021Q3

REPORT INFORMATION
  Report Type: Spontaneous
  Country: US (occurrence: US)
  Receive Date: 20210806
  Receipt Date: 20210806
  Transmission Date: 20211014
  Serious: No
  Sender: FDA-Public Use
  Company Number: US-GLAXOSMITHKLINE-US2021165279

PATIENT
  Age: 72 Year
  Sex: Female

DRUGS (2)
  1. FLONASE SENSIMIST ALLERGY RELIEF [Suspect]
     Active Substance: FLUTICASONE FUROATE
     Indication: HYPERSENSITIVITY
     Dosage: 1 PUFF(S) ONE SPRAY IN EACH NOSTRIL
     Route: 055
     Dates: start: 20210501
  2. FLONASE SENSIMIST ALLERGY RELIEF [Suspect]
     Active Substance: FLUTICASONE FUROATE
     Dosage: 1 PUFF(S) ONE SPRAY IN EACH NOSTRIL
     Route: 055

REACTIONS (9)
  - Nausea [Unknown]
  - Ear disorder [Unknown]
  - Lymphadenopathy [Unknown]
  - Hypotension [Unknown]
  - Dysstasia [Unknown]
  - Spinal pain [Unknown]
  - Neck mass [Unknown]
  - Dizziness [Unknown]
  - Visual impairment [Unknown]
